FAERS Safety Report 15853382 (Version 1)
Quarter: 2019Q1

REPORT INFORMATION
  Report Type: Spontaneous
  Country: US (occurrence: US)
  Receive Date: 20190120
  Receipt Date: 20190120
  Transmission Date: 20190417
  Serious: No
  Sender: FDA-Public Use
  Company Number: None

PATIENT
  Age: 30 Year
  Sex: Female
  Weight: 60.75 kg

DRUGS (13)
  1. IBUPROFEN. [Concomitant]
     Active Substance: IBUPROFEN
  2. ZOVIA [Concomitant]
     Active Substance: ETHINYL ESTRADIOL\ETHYNODIOL DIACETATE
  3. BACLOFEN. [Concomitant]
     Active Substance: BACLOFEN
  4. SENNA [Concomitant]
     Active Substance: SENNA LEAF\SENNOSIDES\SENNOSIDES A AND B
  5. VITAMIN D3 [Concomitant]
     Active Substance: CHOLECALCIFEROL
  6. ACETAMINOPHEN. [Concomitant]
     Active Substance: ACETAMINOPHEN
  7. AIMOVIG [Suspect]
     Active Substance: ERENUMAB-AOOE
     Indication: MIGRAINE
     Dosage: ?          QUANTITY:2 AUTOINJECTORS;OTHER FREQUENCY:MONTHLY;?
     Route: 058
     Dates: start: 20180720, end: 20181214
  8. ZYRTEC [Concomitant]
     Active Substance: CETIRIZINE HYDROCHLORIDE
  9. AMERGE [Concomitant]
     Active Substance: NARATRIPTAN HYDROCHLORIDE
  10. PROBIOTICS [Concomitant]
     Active Substance: PROBIOTICS NOS
  11. ZOFRAN [Concomitant]
     Active Substance: ONDANSETRON HYDROCHLORIDE
  12. MELATONIN [Concomitant]
     Active Substance: MELATONIN
  13. MAG-OX [Concomitant]
     Active Substance: MAGNESIUM OXIDE

REACTIONS (13)
  - Nausea [None]
  - Migraine [None]
  - Muscle spasms [None]
  - Constipation [None]
  - Hypokinesia [None]
  - Haemorrhoids [None]
  - Alopecia [None]
  - Pruritus [None]
  - Abdominal distension [None]
  - Acne [None]
  - Abdominal pain upper [None]
  - Abdominal pain [None]
  - Insomnia [None]

NARRATIVE: CASE EVENT DATE: 20180921
